FAERS Safety Report 24946393 (Version 3)
Quarter: 2025Q1

REPORT INFORMATION
  Report Type: Spontaneous
  Country: CA (occurrence: CA)
  Receive Date: 20250210
  Receipt Date: 20250223
  Transmission Date: 20250409
  Serious: Yes (Death, Life-Threatening, Hospitalization, Disabling, Congenital Anomaly, Other)
  Sender: Haleon PLC
  Company Number: CA-002147023-NVSC2025CA013655

PATIENT
  Age: 40 Year
  Sex: Female
  Weight: 96 kg

DRUGS (461)
  1. DICLOFENAC DIETHYLAMINE [Suspect]
     Active Substance: DICLOFENAC DIETHYLAMINE
     Indication: Product used for unknown indication
     Route: 065
  2. DICLOFENAC DIETHYLAMINE [Suspect]
     Active Substance: DICLOFENAC DIETHYLAMINE
     Route: 058
  3. CALCIUM CARBONATE [Suspect]
     Active Substance: CALCIUM CARBONATE
     Indication: Product used for unknown indication
     Route: 065
  4. CALCIUM CITRATE [Suspect]
     Active Substance: CALCIUM CITRATE
     Indication: Product used for unknown indication
     Route: 065
  5. CALCIUM CITRATE [Suspect]
     Active Substance: CALCIUM CITRATE
     Route: 065
  6. CETIRIZINE [Suspect]
     Active Substance: CETIRIZINE HYDROCHLORIDE
     Indication: Rheumatoid arthritis
     Route: 048
  7. CETIRIZINE [Suspect]
     Active Substance: CETIRIZINE HYDROCHLORIDE
     Indication: Off label use
     Route: 048
  8. CETIRIZINE [Suspect]
     Active Substance: CETIRIZINE HYDROCHLORIDE
     Route: 065
  9. CETIRIZINE [Suspect]
     Active Substance: CETIRIZINE HYDROCHLORIDE
     Route: 048
  10. CETIRIZINE [Suspect]
     Active Substance: CETIRIZINE HYDROCHLORIDE
     Route: 048
  11. CETIRIZINE [Suspect]
     Active Substance: CETIRIZINE HYDROCHLORIDE
     Route: 065
  12. LEFLUNOMIDE [Suspect]
     Active Substance: LEFLUNOMIDE
     Indication: Rheumatoid arthritis
     Route: 065
  13. LEFLUNOMIDE [Suspect]
     Active Substance: LEFLUNOMIDE
     Route: 065
  14. LEFLUNOMIDE [Suspect]
     Active Substance: LEFLUNOMIDE
     Route: 048
  15. LEFLUNOMIDE [Suspect]
     Active Substance: LEFLUNOMIDE
     Route: 065
  16. LEFLUNOMIDE [Suspect]
     Active Substance: LEFLUNOMIDE
     Route: 065
  17. ALENDRONATE SODIUM [Suspect]
     Active Substance: ALENDRONATE SODIUM
     Indication: Rheumatoid arthritis
     Route: 065
  18. ALENDRONATE SODIUM [Suspect]
     Active Substance: ALENDRONATE SODIUM
     Route: 048
  19. ALENDRONATE SODIUM [Suspect]
     Active Substance: ALENDRONATE SODIUM
     Route: 065
  20. MAGNESIUM CITRATE [Suspect]
     Active Substance: MAGNESIUM CITRATE
     Indication: Product used for unknown indication
     Route: 065
  21. RAMIPRIL [Suspect]
     Active Substance: RAMIPRIL
     Indication: Rheumatoid arthritis
     Route: 065
  22. RAMIPRIL [Suspect]
     Active Substance: RAMIPRIL
     Route: 065
  23. RAMIPRIL [Suspect]
     Active Substance: RAMIPRIL
     Route: 065
  24. RAMIPRIL [Suspect]
     Active Substance: RAMIPRIL
     Route: 016
  25. RAMIPRIL [Suspect]
     Active Substance: RAMIPRIL
     Route: 016
  26. RAMIPRIL [Suspect]
     Active Substance: RAMIPRIL
     Route: 065
  27. RAMIPRIL [Suspect]
     Active Substance: RAMIPRIL
     Route: 065
  28. RAMIPRIL [Suspect]
     Active Substance: RAMIPRIL
     Route: 065
  29. INFLIXIMAB [Suspect]
     Active Substance: INFLIXIMAB
     Indication: Rheumatoid arthritis
     Route: 042
  30. INFLIXIMAB [Suspect]
     Active Substance: INFLIXIMAB
     Route: 065
  31. INFLIXIMAB [Suspect]
     Active Substance: INFLIXIMAB
     Route: 065
  32. INFLIXIMAB [Suspect]
     Active Substance: INFLIXIMAB
     Route: 065
  33. INFLIXIMAB [Suspect]
     Active Substance: INFLIXIMAB
     Route: 065
  34. INFLIXIMAB [Suspect]
     Active Substance: INFLIXIMAB
     Route: 065
  35. INFLIXIMAB [Suspect]
     Active Substance: INFLIXIMAB
     Route: 065
  36. INFLIXIMAB [Suspect]
     Active Substance: INFLIXIMAB
     Route: 065
  37. INFLIXIMAB [Suspect]
     Active Substance: INFLIXIMAB
     Route: 065
  38. INFLIXIMAB [Suspect]
     Active Substance: INFLIXIMAB
     Route: 065
  39. TRAMADOL HYDROCHLORIDE [Suspect]
     Active Substance: TRAMADOL HYDROCHLORIDE
     Indication: Product used for unknown indication
     Route: 065
  40. TRIAMCINOLONE ACETONIDE [Suspect]
     Active Substance: TRIAMCINOLONE ACETONIDE
     Indication: Rheumatoid arthritis
     Route: 014
  41. TRIAMCINOLONE ACETONIDE [Suspect]
     Active Substance: TRIAMCINOLONE ACETONIDE
     Route: 014
  42. TRIAMCINOLONE ACETONIDE [Suspect]
     Active Substance: TRIAMCINOLONE ACETONIDE
     Route: 065
  43. TRIAMCINOLONE ACETONIDE [Suspect]
     Active Substance: TRIAMCINOLONE ACETONIDE
     Route: 065
  44. TRIAMCINOLONE ACETONIDE [Suspect]
     Active Substance: TRIAMCINOLONE ACETONIDE
     Route: 065
  45. METHOTREXATE [Suspect]
     Active Substance: METHOTREXATE
     Indication: Rheumatoid arthritis
     Route: 065
  46. METHOTREXATE [Suspect]
     Active Substance: METHOTREXATE
     Route: 048
  47. METHOTREXATE [Suspect]
     Active Substance: METHOTREXATE
     Route: 065
  48. METHOTREXATE [Suspect]
     Active Substance: METHOTREXATE
     Route: 065
  49. METHOTREXATE [Suspect]
     Active Substance: METHOTREXATE
     Route: 048
  50. METHOTREXATE [Suspect]
     Active Substance: METHOTREXATE
     Route: 048
  51. METHOTREXATE [Suspect]
     Active Substance: METHOTREXATE
     Route: 013
  52. METHOTREXATE [Suspect]
     Active Substance: METHOTREXATE
     Route: 065
  53. METHOTREXATE [Suspect]
     Active Substance: METHOTREXATE
     Route: 048
  54. METHOTREXATE [Suspect]
     Active Substance: METHOTREXATE
     Route: 048
  55. METHOTREXATE [Suspect]
     Active Substance: METHOTREXATE
     Route: 065
  56. METHOTREXATE [Suspect]
     Active Substance: METHOTREXATE
     Route: 065
  57. METHOTREXATE [Suspect]
     Active Substance: METHOTREXATE
     Route: 058
  58. METHOTREXATE [Suspect]
     Active Substance: METHOTREXATE
     Route: 058
  59. METHOTREXATE [Suspect]
     Active Substance: METHOTREXATE
     Route: 048
  60. METHOTREXATE [Suspect]
     Active Substance: METHOTREXATE
     Route: 065
  61. METHOTREXATE [Suspect]
     Active Substance: METHOTREXATE
     Route: 016
  62. METHOTREXATE [Suspect]
     Active Substance: METHOTREXATE
     Route: 048
  63. METHOTREXATE [Suspect]
     Active Substance: METHOTREXATE
     Route: 065
  64. METHOTREXATE [Suspect]
     Active Substance: METHOTREXATE
     Route: 013
  65. METHOTREXATE [Suspect]
     Active Substance: METHOTREXATE
     Route: 048
  66. METHOTREXATE [Suspect]
     Active Substance: METHOTREXATE
     Route: 058
  67. METHOTREXATE [Suspect]
     Active Substance: METHOTREXATE
     Route: 065
  68. METHOTREXATE [Suspect]
     Active Substance: METHOTREXATE
     Route: 048
  69. METHOTREXATE [Suspect]
     Active Substance: METHOTREXATE
     Route: 048
  70. METHOTREXATE [Suspect]
     Active Substance: METHOTREXATE
     Route: 048
  71. METHOTREXATE [Suspect]
     Active Substance: METHOTREXATE
     Route: 058
  72. METHOTREXATE [Suspect]
     Active Substance: METHOTREXATE
     Route: 048
  73. METHOTREXATE [Suspect]
     Active Substance: METHOTREXATE
     Route: 065
  74. METHOTREXATE [Suspect]
     Active Substance: METHOTREXATE
     Route: 065
  75. METHOTREXATE [Suspect]
     Active Substance: METHOTREXATE
     Route: 065
  76. METHOTREXATE [Suspect]
     Active Substance: METHOTREXATE
     Route: 065
  77. PREDNISONE [Suspect]
     Active Substance: PREDNISONE
     Indication: Rheumatoid arthritis
     Route: 065
  78. PREDNISONE [Suspect]
     Active Substance: PREDNISONE
     Route: 065
  79. PREDNISONE [Suspect]
     Active Substance: PREDNISONE
     Route: 048
  80. PREDNISONE [Suspect]
     Active Substance: PREDNISONE
     Route: 065
  81. PREDNISONE [Suspect]
     Active Substance: PREDNISONE
     Route: 048
  82. PREDNISONE [Suspect]
     Active Substance: PREDNISONE
     Route: 065
  83. PREDNISONE [Suspect]
     Active Substance: PREDNISONE
     Route: 065
  84. PREDNISONE [Suspect]
     Active Substance: PREDNISONE
     Route: 065
  85. PREDNISONE [Suspect]
     Active Substance: PREDNISONE
     Route: 065
  86. PREDNISONE [Suspect]
     Active Substance: PREDNISONE
     Route: 065
  87. PREDNISONE [Suspect]
     Active Substance: PREDNISONE
     Route: 065
  88. PREDNISONE [Suspect]
     Active Substance: PREDNISONE
     Route: 065
  89. PREDNISONE [Suspect]
     Active Substance: PREDNISONE
     Route: 065
  90. PREDNISONE [Suspect]
     Active Substance: PREDNISONE
     Route: 065
  91. PREDNISONE [Suspect]
     Active Substance: PREDNISONE
     Route: 065
  92. SULFASALAZINE [Suspect]
     Active Substance: SULFASALAZINE
     Indication: Rheumatoid arthritis
     Route: 065
  93. SULFASALAZINE [Suspect]
     Active Substance: SULFASALAZINE
     Route: 065
  94. SULFASALAZINE [Suspect]
     Active Substance: SULFASALAZINE
     Route: 065
  95. SULFASALAZINE [Suspect]
     Active Substance: SULFASALAZINE
     Route: 065
  96. SIMPONI [Suspect]
     Active Substance: GOLIMUMAB
     Indication: Rheumatoid arthritis
     Route: 058
  97. SIMPONI [Suspect]
     Active Substance: GOLIMUMAB
     Indication: Prostatic specific antigen
     Route: 058
  98. SIMPONI [Suspect]
     Active Substance: GOLIMUMAB
     Route: 065
  99. SIMPONI [Suspect]
     Active Substance: GOLIMUMAB
     Route: 065
  100. SIMPONI [Suspect]
     Active Substance: GOLIMUMAB
     Route: 065
  101. SIMPONI [Suspect]
     Active Substance: GOLIMUMAB
     Route: 065
  102. SIMPONI [Suspect]
     Active Substance: GOLIMUMAB
     Route: 065
  103. SIMPONI [Suspect]
     Active Substance: GOLIMUMAB
     Route: 065
  104. SIMPONI [Suspect]
     Active Substance: GOLIMUMAB
     Route: 065
  105. SIMPONI [Suspect]
     Active Substance: GOLIMUMAB
     Route: 058
  106. SIMPONI [Suspect]
     Active Substance: GOLIMUMAB
     Route: 058
  107. SIMPONI [Suspect]
     Active Substance: GOLIMUMAB
     Route: 058
  108. SIMPONI [Suspect]
     Active Substance: GOLIMUMAB
     Route: 065
  109. SIMPONI [Suspect]
     Active Substance: GOLIMUMAB
     Route: 065
  110. SIRUKUMAB [Suspect]
     Active Substance: SIRUKUMAB
     Indication: Product used for unknown indication
     Route: 065
  111. SIRUKUMAB [Suspect]
     Active Substance: SIRUKUMAB
     Route: 065
  112. SIRUKUMAB [Suspect]
     Active Substance: SIRUKUMAB
     Route: 065
  113. SIRUKUMAB [Suspect]
     Active Substance: SIRUKUMAB
     Route: 065
  114. SIRUKUMAB [Suspect]
     Active Substance: SIRUKUMAB
     Route: 065
  115. SIRUKUMAB [Suspect]
     Active Substance: SIRUKUMAB
     Route: 065
  116. SIRUKUMAB [Suspect]
     Active Substance: SIRUKUMAB
     Route: 065
  117. SIRUKUMAB [Suspect]
     Active Substance: SIRUKUMAB
     Route: 065
  118. SIRUKUMAB [Suspect]
     Active Substance: SIRUKUMAB
     Route: 065
  119. SIRUKUMAB [Suspect]
     Active Substance: SIRUKUMAB
     Route: 065
  120. SIRUKUMAB [Suspect]
     Active Substance: SIRUKUMAB
     Route: 065
  121. SIRUKUMAB [Suspect]
     Active Substance: SIRUKUMAB
     Route: 065
  122. SIRUKUMAB [Suspect]
     Active Substance: SIRUKUMAB
     Route: 065
  123. SIRUKUMAB [Suspect]
     Active Substance: SIRUKUMAB
     Route: 065
  124. SIRUKUMAB [Suspect]
     Active Substance: SIRUKUMAB
     Route: 065
  125. SIRUKUMAB [Suspect]
     Active Substance: SIRUKUMAB
     Route: 065
  126. SIRUKUMAB [Suspect]
     Active Substance: SIRUKUMAB
     Route: 065
  127. GOLD SODIUM THIOMALATE [Suspect]
     Active Substance: GOLD SODIUM THIOMALATE
     Indication: Product used for unknown indication
     Route: 048
  128. GOLD SODIUM THIOMALATE [Suspect]
     Active Substance: GOLD SODIUM THIOMALATE
     Route: 030
  129. GOLD SODIUM THIOMALATE [Suspect]
     Active Substance: GOLD SODIUM THIOMALATE
     Route: 065
  130. GOLD SODIUM THIOMALATE [Suspect]
     Active Substance: GOLD SODIUM THIOMALATE
     Route: 065
  131. GOLD SODIUM THIOMALATE [Suspect]
     Active Substance: GOLD SODIUM THIOMALATE
     Route: 048
  132. GOLD SODIUM THIOMALATE [Suspect]
     Active Substance: GOLD SODIUM THIOMALATE
     Route: 030
  133. GOLD SODIUM THIOMALATE [Suspect]
     Active Substance: GOLD SODIUM THIOMALATE
     Route: 065
  134. GOLD SODIUM THIOMALATE [Suspect]
     Active Substance: GOLD SODIUM THIOMALATE
     Route: 065
  135. GOLD SODIUM THIOMALATE [Suspect]
     Active Substance: GOLD SODIUM THIOMALATE
     Route: 058
  136. PREDNISONE [Suspect]
     Active Substance: PREDNISONE
     Indication: Rheumatoid arthritis
     Route: 048
  137. PREDNISONE [Suspect]
     Active Substance: PREDNISONE
     Route: 065
  138. PREDNISONE [Suspect]
     Active Substance: PREDNISONE
     Route: 048
  139. PREDNISONE [Suspect]
     Active Substance: PREDNISONE
     Route: 048
  140. PREDNISONE [Suspect]
     Active Substance: PREDNISONE
     Route: 048
  141. PREDNISONE [Suspect]
     Active Substance: PREDNISONE
     Route: 065
  142. PREDNISONE [Suspect]
     Active Substance: PREDNISONE
     Route: 065
  143. PREDNISONE [Suspect]
     Active Substance: PREDNISONE
     Route: 048
  144. PREDNISONE [Suspect]
     Active Substance: PREDNISONE
     Route: 048
  145. PREDNISONE [Suspect]
     Active Substance: PREDNISONE
     Route: 065
  146. HYDROXYCHLOROQUINE SULFATE [Suspect]
     Active Substance: HYDROXYCHLOROQUINE SULFATE
     Indication: Rheumatoid arthritis
     Route: 048
  147. HYDROXYCHLOROQUINE SULFATE [Suspect]
     Active Substance: HYDROXYCHLOROQUINE SULFATE
     Route: 048
  148. HYDROXYCHLOROQUINE SULFATE [Suspect]
     Active Substance: HYDROXYCHLOROQUINE SULFATE
     Route: 065
  149. HYDROXYCHLOROQUINE SULFATE [Suspect]
     Active Substance: HYDROXYCHLOROQUINE SULFATE
     Route: 065
  150. HYDROXYCHLOROQUINE SULFATE [Suspect]
     Active Substance: HYDROXYCHLOROQUINE SULFATE
     Route: 065
  151. HYDROXYCHLOROQUINE SULFATE [Suspect]
     Active Substance: HYDROXYCHLOROQUINE SULFATE
     Route: 048
  152. HYDROXYCHLOROQUINE SULFATE [Suspect]
     Active Substance: HYDROXYCHLOROQUINE SULFATE
     Route: 048
  153. HYDROXYCHLOROQUINE SULFATE [Suspect]
     Active Substance: HYDROXYCHLOROQUINE SULFATE
     Route: 065
  154. HYDROXYCHLOROQUINE SULFATE [Suspect]
     Active Substance: HYDROXYCHLOROQUINE SULFATE
     Route: 065
  155. HYDROXYCHLOROQUINE SULFATE [Suspect]
     Active Substance: HYDROXYCHLOROQUINE SULFATE
     Route: 065
  156. METHYLPREDNISOLONE [Suspect]
     Active Substance: METHYLPREDNISOLONE
     Indication: Product used for unknown indication
     Route: 065
  157. METHYLPREDNISOLONE [Suspect]
     Active Substance: METHYLPREDNISOLONE
     Route: 065
  158. RITUXIMAB [Suspect]
     Active Substance: RITUXIMAB
     Indication: Rheumatoid arthritis
     Route: 042
  159. RITUXIMAB [Suspect]
     Active Substance: RITUXIMAB
     Route: 065
  160. RITUXIMAB [Suspect]
     Active Substance: RITUXIMAB
     Route: 065
  161. RITUXIMAB [Suspect]
     Active Substance: RITUXIMAB
     Route: 065
  162. RITUXIMAB [Suspect]
     Active Substance: RITUXIMAB
     Route: 065
  163. RITUXIMAB [Suspect]
     Active Substance: RITUXIMAB
     Route: 065
  164. RITUXIMAB [Suspect]
     Active Substance: RITUXIMAB
     Route: 065
  165. RITUXIMAB [Suspect]
     Active Substance: RITUXIMAB
     Route: 042
  166. RITUXIMAB [Suspect]
     Active Substance: RITUXIMAB
     Route: 065
  167. RITUXIMAB [Suspect]
     Active Substance: RITUXIMAB
     Route: 019
  168. RITUXIMAB [Suspect]
     Active Substance: RITUXIMAB
     Route: 058
  169. RITUXIMAB [Suspect]
     Active Substance: RITUXIMAB
     Route: 065
  170. RITUXIMAB [Suspect]
     Active Substance: RITUXIMAB
     Route: 065
  171. RITUXIMAB [Suspect]
     Active Substance: RITUXIMAB
     Route: 065
  172. RITUXIMAB [Suspect]
     Active Substance: RITUXIMAB
     Route: 065
  173. RITUXIMAB [Suspect]
     Active Substance: RITUXIMAB
     Route: 016
  174. RITUXIMAB [Suspect]
     Active Substance: RITUXIMAB
     Route: 040
  175. RITUXIMAB [Suspect]
     Active Substance: RITUXIMAB
     Route: 065
  176. RITUXIMAB [Suspect]
     Active Substance: RITUXIMAB
     Route: 042
  177. RITUXIMAB [Suspect]
     Active Substance: RITUXIMAB
     Route: 040
  178. RITUXIMAB [Suspect]
     Active Substance: RITUXIMAB
     Route: 040
  179. RITUXIMAB [Suspect]
     Active Substance: RITUXIMAB
     Route: 016
  180. RITUXIMAB [Suspect]
     Active Substance: RITUXIMAB
     Route: 043
  181. RITUXIMAB [Suspect]
     Active Substance: RITUXIMAB
     Route: 042
  182. RITUXIMAB [Suspect]
     Active Substance: RITUXIMAB
     Dosage: DAILY DOSE: DURATION OF 4 MONTHS AND 28 DAYS, 2/DAYS
     Route: 042
  183. RITUXIMAB [Suspect]
     Active Substance: RITUXIMAB
     Route: 042
  184. RITUXIMAB [Suspect]
     Active Substance: RITUXIMAB
     Route: 042
  185. RITUXIMAB [Suspect]
     Active Substance: RITUXIMAB
     Route: 042
  186. RITUXIMAB [Suspect]
     Active Substance: RITUXIMAB
     Route: 065
  187. RITUXIMAB [Suspect]
     Active Substance: RITUXIMAB
     Route: 042
  188. RITUXIMAB [Suspect]
     Active Substance: RITUXIMAB
     Route: 042
  189. RITUXIMAB [Suspect]
     Active Substance: RITUXIMAB
     Route: 065
  190. RITUXIMAB [Suspect]
     Active Substance: RITUXIMAB
     Route: 065
  191. RITUXIMAB [Suspect]
     Active Substance: RITUXIMAB
     Route: 042
  192. CANDESARTAN [Suspect]
     Active Substance: CANDESARTAN
     Indication: Migraine
     Route: 048
  193. COSENTYX [Concomitant]
     Active Substance: SECUKINUMAB
     Indication: Product used for unknown indication
  194. OXYCODONE [Suspect]
     Active Substance: OXYCODONE
     Indication: Product used for unknown indication
     Route: 065
  195. OXYCODONE [Suspect]
     Active Substance: OXYCODONE
     Route: 065
  196. ERELZI [Suspect]
     Active Substance: ETANERCEPT-SZZS
     Indication: Rheumatoid arthritis
     Route: 058
  197. ERELZI [Suspect]
     Active Substance: ETANERCEPT-SZZS
     Route: 058
  198. ERELZI [Suspect]
     Active Substance: ETANERCEPT-SZZS
     Route: 058
  199. ERELZI [Suspect]
     Active Substance: ETANERCEPT-SZZS
     Route: 065
  200. ETANERCEPT [Suspect]
     Active Substance: ETANERCEPT
     Indication: Rheumatoid arthritis
     Route: 065
  201. AIMOVIG [Suspect]
     Active Substance: ERENUMAB-AOOE
     Indication: Migraine
     Route: 065
  202. ADALIMUMAB [Suspect]
     Active Substance: ADALIMUMAB
     Indication: Rheumatoid arthritis
     Route: 058
  203. ADALIMUMAB [Suspect]
     Active Substance: ADALIMUMAB
     Route: 058
  204. ADALIMUMAB [Suspect]
     Active Substance: ADALIMUMAB
     Route: 058
  205. ADALIMUMAB [Suspect]
     Active Substance: ADALIMUMAB
     Route: 058
  206. ADALIMUMAB [Suspect]
     Active Substance: ADALIMUMAB
     Route: 058
  207. ADALIMUMAB [Suspect]
     Active Substance: ADALIMUMAB
     Route: 058
  208. ADALIMUMAB [Suspect]
     Active Substance: ADALIMUMAB
     Route: 058
  209. COSENTYX [Suspect]
     Active Substance: SECUKINUMAB
     Indication: Psoriatic arthropathy
     Route: 065
  210. TRIAMCINOLONE ACETONIDE [Suspect]
     Active Substance: TRIAMCINOLONE ACETONIDE
     Indication: Rheumatoid arthritis
     Route: 014
  211. TRIAMCINOLONE ACETONIDE [Suspect]
     Active Substance: TRIAMCINOLONE ACETONIDE
     Route: 014
  212. TRIAMCINOLONE ACETONIDE [Suspect]
     Active Substance: TRIAMCINOLONE ACETONIDE
     Route: 065
  213. MINOCYCLINE [Suspect]
     Active Substance: MINOCYCLINE HYDROCHLORIDE
     Indication: Rheumatoid arthritis
     Route: 065
  214. MINOCYCLINE [Suspect]
     Active Substance: MINOCYCLINE HYDROCHLORIDE
     Route: 065
  215. MINOCYCLINE [Suspect]
     Active Substance: MINOCYCLINE HYDROCHLORIDE
     Route: 065
  216. MYOCHRYSINE [Suspect]
     Active Substance: GOLD SODIUM THIOMALATE
     Indication: Rheumatoid arthritis
     Route: 030
  217. MYOCHRYSINE [Suspect]
     Active Substance: GOLD SODIUM THIOMALATE
     Route: 065
  218. MYOCHRYSINE [Suspect]
     Active Substance: GOLD SODIUM THIOMALATE
     Route: 030
  219. MYOCHRYSINE [Suspect]
     Active Substance: GOLD SODIUM THIOMALATE
     Route: 065
  220. KEVZARA [Suspect]
     Active Substance: SARILUMAB
     Indication: Product used for unknown indication
     Route: 065
  221. KEVZARA [Suspect]
     Active Substance: SARILUMAB
     Route: 065
  222. NICOTINAMIDE [Suspect]
     Active Substance: NIACINAMIDE
     Indication: Product used for unknown indication
     Route: 065
  223. NICOTINAMIDE [Suspect]
     Active Substance: NIACINAMIDE
     Route: 065
  224. MEGLUMINE [Suspect]
     Active Substance: MEGLUMINE
     Indication: Product used for unknown indication
     Route: 065
  225. MEGLUMINE [Suspect]
     Active Substance: MEGLUMINE
     Route: 065
  226. ORENCIA [Suspect]
     Active Substance: ABATACEPT
     Indication: Rheumatoid arthritis
     Route: 042
  227. ORENCIA [Suspect]
     Active Substance: ABATACEPT
     Route: 058
  228. ORENCIA [Suspect]
     Active Substance: ABATACEPT
     Route: 065
  229. ORENCIA [Suspect]
     Active Substance: ABATACEPT
     Route: 065
  230. ORENCIA [Suspect]
     Active Substance: ABATACEPT
     Route: 065
  231. ORENCIA [Suspect]
     Active Substance: ABATACEPT
     Route: 065
  232. ORENCIA [Suspect]
     Active Substance: ABATACEPT
     Route: 065
  233. ORENCIA [Suspect]
     Active Substance: ABATACEPT
     Route: 065
  234. ORENCIA [Suspect]
     Active Substance: ABATACEPT
     Route: 065
  235. ORENCIA [Suspect]
     Active Substance: ABATACEPT
     Route: 042
  236. ORENCIA [Suspect]
     Active Substance: ABATACEPT
     Route: 058
  237. ORENCIA [Suspect]
     Active Substance: ABATACEPT
     Route: 065
  238. ORENCIA [Suspect]
     Active Substance: ABATACEPT
     Route: 065
  239. ORENCIA [Suspect]
     Active Substance: ABATACEPT
     Route: 042
  240. ORENCIA [Suspect]
     Active Substance: ABATACEPT
     Route: 065
  241. ORENCIA [Suspect]
     Active Substance: ABATACEPT
     Route: 065
  242. ORENCIA [Suspect]
     Active Substance: ABATACEPT
     Route: 065
  243. ORENCIA [Suspect]
     Active Substance: ABATACEPT
     Route: 065
  244. PHTHALYLSULFATHIAZOLE [Suspect]
     Active Substance: PHTHALYLSULFATHIAZOLE
     Indication: Rheumatoid arthritis
     Route: 048
  245. PHTHALYLSULFATHIAZOLE [Suspect]
     Active Substance: PHTHALYLSULFATHIAZOLE
     Route: 058
  246. PHTHALYLSULFATHIAZOLE [Suspect]
     Active Substance: PHTHALYLSULFATHIAZOLE
     Route: 065
  247. PHTHALYLSULFATHIAZOLE [Suspect]
     Active Substance: PHTHALYLSULFATHIAZOLE
     Route: 048
  248. PHTHALYLSULFATHIAZOLE [Suspect]
     Active Substance: PHTHALYLSULFATHIAZOLE
     Route: 048
  249. PHTHALYLSULFATHIAZOLE [Suspect]
     Active Substance: PHTHALYLSULFATHIAZOLE
     Route: 065
  250. PHTHALYLSULFATHIAZOLE [Suspect]
     Active Substance: PHTHALYLSULFATHIAZOLE
     Route: 065
  251. PHTHALYLSULFATHIAZOLE [Suspect]
     Active Substance: PHTHALYLSULFATHIAZOLE
     Route: 065
  252. PHTHALYLSULFATHIAZOLE [Suspect]
     Active Substance: PHTHALYLSULFATHIAZOLE
     Route: 065
  253. PHTHALYLSULFATHIAZOLE [Suspect]
     Active Substance: PHTHALYLSULFATHIAZOLE
     Route: 065
  254. PHTHALYLSULFATHIAZOLE [Suspect]
     Active Substance: PHTHALYLSULFATHIAZOLE
     Route: 065
  255. PHTHALYLSULFATHIAZOLE [Suspect]
     Active Substance: PHTHALYLSULFATHIAZOLE
     Route: 048
  256. PHTHALYLSULFATHIAZOLE [Suspect]
     Active Substance: PHTHALYLSULFATHIAZOLE
     Route: 065
  257. PHTHALYLSULFATHIAZOLE [Suspect]
     Active Substance: PHTHALYLSULFATHIAZOLE
     Route: 065
  258. PHTHALYLSULFATHIAZOLE [Suspect]
     Active Substance: PHTHALYLSULFATHIAZOLE
     Route: 065
  259. PHTHALYLSULFATHIAZOLE [Suspect]
     Active Substance: PHTHALYLSULFATHIAZOLE
     Route: 065
  260. PHTHALYLSULFATHIAZOLE [Suspect]
     Active Substance: PHTHALYLSULFATHIAZOLE
     Route: 065
  261. PHTHALYLSULFATHIAZOLE [Suspect]
     Active Substance: PHTHALYLSULFATHIAZOLE
     Route: 065
  262. PHTHALYLSULFATHIAZOLE [Suspect]
     Active Substance: PHTHALYLSULFATHIAZOLE
     Route: 065
  263. PSEUDOEPHEDRINE HYDROCHLORIDE [Suspect]
     Active Substance: PSEUDOEPHEDRINE HYDROCHLORIDE
     Indication: Product used for unknown indication
     Route: 065
  264. PSEUDOEPHEDRINE HYDROCHLORIDE [Suspect]
     Active Substance: PSEUDOEPHEDRINE HYDROCHLORIDE
     Indication: Rheumatoid arthritis
     Route: 065
  265. PSEUDOEPHEDRINE HYDROCHLORIDE [Suspect]
     Active Substance: PSEUDOEPHEDRINE HYDROCHLORIDE
     Route: 065
  266. XELJANZ [Suspect]
     Active Substance: TOFACITINIB CITRATE
     Indication: Rheumatoid arthritis
     Route: 065
  267. XELJANZ [Suspect]
     Active Substance: TOFACITINIB CITRATE
     Route: 048
  268. XELJANZ [Suspect]
     Active Substance: TOFACITINIB CITRATE
     Route: 048
  269. XELJANZ [Suspect]
     Active Substance: TOFACITINIB CITRATE
     Route: 048
  270. XELJANZ [Suspect]
     Active Substance: TOFACITINIB CITRATE
     Route: 048
  271. XELJANZ [Suspect]
     Active Substance: TOFACITINIB CITRATE
     Route: 065
  272. XELJANZ [Suspect]
     Active Substance: TOFACITINIB CITRATE
     Route: 048
  273. XELJANZ [Suspect]
     Active Substance: TOFACITINIB CITRATE
     Route: 048
  274. XELJANZ [Suspect]
     Active Substance: TOFACITINIB CITRATE
     Route: 048
  275. XELJANZ [Suspect]
     Active Substance: TOFACITINIB CITRATE
     Route: 048
  276. XELJANZ [Suspect]
     Active Substance: TOFACITINIB CITRATE
     Route: 065
  277. XELJANZ [Suspect]
     Active Substance: TOFACITINIB CITRATE
     Route: 065
  278. TRAMADOL HYDROCHLORIDE [Suspect]
     Active Substance: TRAMADOL HYDROCHLORIDE
     Indication: Product used for unknown indication
     Route: 065
  279. TRAMADOL HYDROCHLORIDE [Suspect]
     Active Substance: TRAMADOL HYDROCHLORIDE
     Route: 065
  280. MYRBETRIQ [Suspect]
     Active Substance: MIRABEGRON
     Indication: Product used for unknown indication
     Route: 065
  281. MYRBETRIQ [Suspect]
     Active Substance: MIRABEGRON
     Route: 065
  282. MYRBETRIQ [Suspect]
     Active Substance: MIRABEGRON
     Route: 065
  283. MYRBETRIQ [Suspect]
     Active Substance: MIRABEGRON
     Route: 065
  284. NAPROSYN [Suspect]
     Active Substance: NAPROXEN
     Indication: Product used for unknown indication
     Route: 065
  285. NAPROSYN [Suspect]
     Active Substance: NAPROXEN
     Route: 065
  286. NAPROSYN [Suspect]
     Active Substance: NAPROXEN
     Route: 065
  287. NAPROSYN [Suspect]
     Active Substance: NAPROXEN
     Route: 065
  288. NAPROSYN [Suspect]
     Active Substance: NAPROXEN
     Route: 065
  289. NUCALA [Suspect]
     Active Substance: MEPOLIZUMAB
     Indication: Product used for unknown indication
     Route: 065
  290. NUCALA [Suspect]
     Active Substance: MEPOLIZUMAB
     Route: 065
  291. NUCALA [Suspect]
     Active Substance: MEPOLIZUMAB
     Route: 065
  292. NUCALA [Suspect]
     Active Substance: MEPOLIZUMAB
     Route: 065
  293. RANITIDINE [Suspect]
     Active Substance: RANITIDINE
     Indication: Product used for unknown indication
     Route: 065
  294. RANITIDINE [Suspect]
     Active Substance: RANITIDINE
     Route: 065
  295. TOPIRAMATE [Suspect]
     Active Substance: TOPIRAMATE
     Indication: Product used for unknown indication
     Route: 065
  296. TOPIRAMATE [Suspect]
     Active Substance: TOPIRAMATE
     Route: 065
  297. CALCIUM CITRATE [Suspect]
     Active Substance: CALCIUM CITRATE
     Indication: Product used for unknown indication
     Route: 065
  298. CALCIUM CITRATE [Suspect]
     Active Substance: CALCIUM CITRATE
     Route: 065
  299. AZATHIOPRINE SODIUM [Suspect]
     Active Substance: AZATHIOPRINE SODIUM
     Indication: Rheumatoid arthritis
     Route: 065
  300. AZATHIOPRINE SODIUM [Suspect]
     Active Substance: AZATHIOPRINE SODIUM
     Route: 065
  301. AZATHIOPRINE SODIUM [Suspect]
     Active Substance: AZATHIOPRINE SODIUM
     Route: 065
  302. AZATHIOPRINE SODIUM [Suspect]
     Active Substance: AZATHIOPRINE SODIUM
     Route: 065
  303. DICLOFENAC SODIUM [Suspect]
     Active Substance: DICLOFENAC SODIUM
     Indication: Product used for unknown indication
     Route: 065
  304. DICLOFENAC SODIUM [Suspect]
     Active Substance: DICLOFENAC SODIUM
     Route: 065
  305. DICLOFENAC SODIUM [Suspect]
     Active Substance: DICLOFENAC SODIUM
     Route: 058
  306. OTEZLA [Suspect]
     Active Substance: APREMILAST
     Indication: Rheumatoid arthritis
  307. Desogestrel, etinilestradiol [Concomitant]
     Indication: Product used for unknown indication
  308. AZATHIOPRINE [Suspect]
     Active Substance: AZATHIOPRINE
     Indication: Rheumatoid arthritis
     Route: 065
  309. AZATHIOPRINE [Suspect]
     Active Substance: AZATHIOPRINE
     Route: 065
  310. CIMZIA [Suspect]
     Active Substance: CERTOLIZUMAB PEGOL
     Indication: Rheumatoid arthritis
     Route: 058
  311. CIMZIA [Suspect]
     Active Substance: CERTOLIZUMAB PEGOL
     Indication: Psoriasis
     Route: 058
  312. CIMZIA [Suspect]
     Active Substance: CERTOLIZUMAB PEGOL
     Route: 065
  313. CIMZIA [Suspect]
     Active Substance: CERTOLIZUMAB PEGOL
     Route: 058
  314. CIMZIA [Suspect]
     Active Substance: CERTOLIZUMAB PEGOL
     Route: 065
  315. CIMZIA [Suspect]
     Active Substance: CERTOLIZUMAB PEGOL
     Route: 065
  316. CIMZIA [Suspect]
     Active Substance: CERTOLIZUMAB PEGOL
     Route: 065
  317. CIMZIA [Suspect]
     Active Substance: CERTOLIZUMAB PEGOL
     Route: 065
  318. CIMZIA [Suspect]
     Active Substance: CERTOLIZUMAB PEGOL
     Route: 065
  319. DESOXIMETASONE [Suspect]
     Active Substance: DESOXIMETASONE
     Indication: Rheumatoid arthritis
     Route: 048
  320. DESOXIMETASONE [Suspect]
     Active Substance: DESOXIMETASONE
     Route: 058
  321. DESOXIMETASONE [Suspect]
     Active Substance: DESOXIMETASONE
     Route: 048
  322. DESOXIMETASONE [Suspect]
     Active Substance: DESOXIMETASONE
     Route: 065
  323. DESOXIMETASONE [Suspect]
     Active Substance: DESOXIMETASONE
     Route: 065
  324. DESOXIMETASONE [Suspect]
     Active Substance: DESOXIMETASONE
     Route: 065
  325. DESOXIMETASONE [Suspect]
     Active Substance: DESOXIMETASONE
     Route: 065
  326. DESOXIMETASONE [Suspect]
     Active Substance: DESOXIMETASONE
     Route: 065
  327. DESOXIMETASONE [Suspect]
     Active Substance: DESOXIMETASONE
     Route: 065
  328. CHLORHEXIDINE GLUCONATE [Suspect]
     Active Substance: CHLORHEXIDINE GLUCONATE
     Indication: Product used for unknown indication
     Route: 002
  329. CHLORHEXIDINE GLUCONATE [Suspect]
     Active Substance: CHLORHEXIDINE GLUCONATE
     Route: 065
  330. FOSAMAX [Suspect]
     Active Substance: ALENDRONATE SODIUM
     Indication: Rheumatoid arthritis
     Route: 048
  331. FOSAMAX [Suspect]
     Active Substance: ALENDRONATE SODIUM
     Route: 048
  332. FOSAMAX [Suspect]
     Active Substance: ALENDRONATE SODIUM
     Route: 065
  333. FOSAMAX [Suspect]
     Active Substance: ALENDRONATE SODIUM
     Route: 065
  334. FOSAMAX [Suspect]
     Active Substance: ALENDRONATE SODIUM
     Route: 065
  335. FOSAMAX [Suspect]
     Active Substance: ALENDRONATE SODIUM
     Route: 065
  336. ACETAMINOPHEN [Suspect]
     Active Substance: ACETAMINOPHEN
     Indication: Arthralgia
     Route: 065
  337. ACETAMINOPHEN [Suspect]
     Active Substance: ACETAMINOPHEN
     Indication: Rheumatoid arthritis
     Route: 065
  338. ACETAMINOPHEN [Suspect]
     Active Substance: ACETAMINOPHEN
     Route: 058
  339. ALENDRONIC ACID [Suspect]
     Active Substance: ALENDRONIC ACID
     Indication: Rheumatoid arthritis
     Route: 048
  340. ALENDRONIC ACID [Suspect]
     Active Substance: ALENDRONIC ACID
     Route: 065
  341. ALENDRONIC ACID [Suspect]
     Active Substance: ALENDRONIC ACID
     Route: 065
  342. CORTISONE ACETATE [Suspect]
     Active Substance: CORTISONE ACETATE
     Indication: Rheumatoid arthritis
     Route: 065
  343. CORTISONE ACETATE [Suspect]
     Active Substance: CORTISONE ACETATE
     Route: 065
  344. CORTISONE ACETATE [Suspect]
     Active Substance: CORTISONE ACETATE
     Route: 065
  345. CORTISONE ACETATE [Suspect]
     Active Substance: CORTISONE ACETATE
     Route: 065
  346. GOLD [Suspect]
     Active Substance: GOLD
     Indication: Product used for unknown indication
     Route: 065
  347. HYDROCORTISONE BUTYRATE [Suspect]
     Active Substance: HYDROCORTISONE BUTYRATE
     Indication: Rheumatoid arthritis
     Route: 065
  348. PSEUDOEPHEDRINE [Suspect]
     Active Substance: PSEUDOEPHEDRINE
     Indication: Rheumatoid arthritis
     Route: 065
  349. PSEUDOEPHEDRINE [Suspect]
     Active Substance: PSEUDOEPHEDRINE
     Route: 065
  350. PSEUDOEPHEDRINE [Suspect]
     Active Substance: PSEUDOEPHEDRINE
     Route: 065
  351. PSEUDOEPHEDRINE [Suspect]
     Active Substance: PSEUDOEPHEDRINE
     Route: 065
  352. PSEUDOEPHEDRINE [Suspect]
     Active Substance: PSEUDOEPHEDRINE
     Route: 065
  353. REMICADE [Suspect]
     Active Substance: INFLIXIMAB
     Indication: Rheumatoid arthritis
     Route: 058
  354. REMICADE [Suspect]
     Active Substance: INFLIXIMAB
     Route: 043
  355. REMICADE [Suspect]
     Active Substance: INFLIXIMAB
     Route: 043
  356. REMICADE [Suspect]
     Active Substance: INFLIXIMAB
     Route: 065
  357. REMICADE [Suspect]
     Active Substance: INFLIXIMAB
     Route: 065
  358. REMICADE [Suspect]
     Active Substance: INFLIXIMAB
     Route: 065
  359. REMICADE [Suspect]
     Active Substance: INFLIXIMAB
     Route: 065
  360. REMICADE [Suspect]
     Active Substance: INFLIXIMAB
     Route: 065
  361. REMICADE [Suspect]
     Active Substance: INFLIXIMAB
     Route: 042
  362. SULFAMETHOXAZOLE [Suspect]
     Active Substance: SULFAMETHOXAZOLE
     Indication: Rheumatoid arthritis
     Route: 048
  363. SULFAMETHOXAZOLE [Suspect]
     Active Substance: SULFAMETHOXAZOLE
     Route: 048
  364. SULFAMETHOXAZOLE [Suspect]
     Active Substance: SULFAMETHOXAZOLE
     Route: 048
  365. ATOMOXETINE HYDROCHLORIDE [Suspect]
     Active Substance: ATOMOXETINE HYDROCHLORIDE
     Indication: Migraine
     Route: 065
  366. BERINERT [Suspect]
     Active Substance: HUMAN C1-ESTERASE INHIBITOR
     Indication: Product used for unknown indication
     Route: 065
  367. BOTULINUM TOXIN TYPE A [Suspect]
     Active Substance: BOTULINUM TOXIN TYPE A
     Indication: Product used for unknown indication
     Route: 065
  368. BUTRANS [Suspect]
     Active Substance: BUPRENORPHINE
     Indication: Product used for unknown indication
     Route: 065
  369. BUTRANS [Suspect]
     Active Substance: BUPRENORPHINE
     Route: 065
  370. CELEBREX [Suspect]
     Active Substance: CELECOXIB
     Indication: Product used for unknown indication
     Route: 048
  371. CELEBREX [Suspect]
     Active Substance: CELECOXIB
     Route: 048
  372. CELEBREX [Suspect]
     Active Substance: CELECOXIB
     Route: 065
  373. CELEBREX [Suspect]
     Active Substance: CELECOXIB
     Route: 065
  374. CELEBREX [Suspect]
     Active Substance: CELECOXIB
     Route: 065
  375. CELEBREX [Suspect]
     Active Substance: CELECOXIB
     Route: 065
  376. CORTISONE [Suspect]
     Active Substance: CORTISONE
     Indication: Rheumatoid arthritis
     Route: 058
  377. CORTISONE [Suspect]
     Active Substance: CORTISONE
     Route: 065
  378. CORTISONE [Suspect]
     Active Substance: CORTISONE
     Route: 065
  379. DOMPERIDONE MALEATE [Suspect]
     Active Substance: DOMPERIDONE MALEATE
     Indication: Product used for unknown indication
     Route: 065
  380. DOMPERIDONE MALEATE [Suspect]
     Active Substance: DOMPERIDONE MALEATE
     Route: 065
  381. FLUMETHASONE PIVALATE [Suspect]
     Active Substance: FLUMETHASONE PIVALATE
     Indication: Product used for unknown indication
     Route: 065
  382. FLUMETHASONE PIVALATE [Suspect]
     Active Substance: FLUMETHASONE PIVALATE
     Route: 065
  383. FLUMETHASONE PIVALATE [Suspect]
     Active Substance: FLUMETHASONE PIVALATE
     Route: 065
  384. LAMICTAL [Suspect]
     Active Substance: LAMOTRIGINE
     Indication: Product used for unknown indication
     Route: 048
  385. LAMICTAL [Suspect]
     Active Substance: LAMOTRIGINE
     Route: 065
  386. LAMICTAL [Suspect]
     Active Substance: LAMOTRIGINE
     Route: 065
  387. LAMICTAL [Suspect]
     Active Substance: LAMOTRIGINE
     Route: 065
  388. FLUMETHASONE PIVALATE [Suspect]
     Active Substance: FLUMETHASONE PIVALATE
     Indication: Product used for unknown indication
     Route: 058
  389. NAPROXEN SODIUM [Suspect]
     Active Substance: NAPROXEN SODIUM
     Indication: Rheumatoid arthritis
     Route: 065
  390. NAPROXEN SODIUM [Suspect]
     Active Substance: NAPROXEN SODIUM
     Route: 065
  391. NAPROXEN SODIUM [Suspect]
     Active Substance: NAPROXEN SODIUM
     Route: 065
  392. TOFACITINIB [Suspect]
     Active Substance: TOFACITINIB
     Indication: Rheumatoid arthritis
     Route: 065
  393. ACETAMINOPHEN AND CODEINE [Suspect]
     Active Substance: ACETAMINOPHEN\CODEINE PHOSPHATE
     Indication: Product used for unknown indication
     Route: 065
  394. ALENDRONATE SODIUM [Suspect]
     Active Substance: ALENDRONATE SODIUM
     Indication: Rheumatoid arthritis
     Route: 065
  395. ALENDRONATE SODIUM [Suspect]
     Active Substance: ALENDRONATE SODIUM
     Route: 065
  396. ALENDRONATE SODIUM [Suspect]
     Active Substance: ALENDRONATE SODIUM
     Route: 065
  397. ALENDRONATE SODIUM [Suspect]
     Active Substance: ALENDRONATE SODIUM
     Route: 048
  398. DICLOFENAC SODIUM [Suspect]
     Active Substance: DICLOFENAC SODIUM
     Indication: Product used for unknown indication
     Route: 065
  399. DICLOFENAC SODIUM [Suspect]
     Active Substance: DICLOFENAC SODIUM
     Route: 065
  400. ATOMOXETINE [Suspect]
     Active Substance: ATOMOXETINE
     Indication: Migraine
     Route: 065
  401. ATOMOXETINE [Suspect]
     Active Substance: ATOMOXETINE
     Route: 065
  402. ATOMOXETINE [Suspect]
     Active Substance: ATOMOXETINE
     Route: 065
  403. VOLTAREN [Suspect]
     Active Substance: DICLOFENAC SODIUM
     Indication: Product used for unknown indication
     Route: 065
  404. HYDROCORTISONE [Suspect]
     Active Substance: HYDROCORTISONE
     Indication: Product used for unknown indication
     Route: 065
  405. METHYLPREDNISOLONE SODIUM SUCCINATE [Suspect]
     Active Substance: METHYLPREDNISOLONE SODIUM SUCCINATE
     Indication: Product used for unknown indication
     Route: 065
  406. METHYLPREDNISOLONE SODIUM SUCCINATE [Suspect]
     Active Substance: METHYLPREDNISOLONE SODIUM SUCCINATE
     Route: 065
  407. VITAMIN C [Suspect]
     Active Substance: ASCORBIC ACID
     Indication: Product used for unknown indication
     Route: 065
  408. ERGOCALCIFEROL [Suspect]
     Active Substance: ERGOCALCIFEROL
     Indication: Product used for unknown indication
     Route: 065
  409. ERGOCALCIFEROL [Suspect]
     Active Substance: ERGOCALCIFEROL
     Route: 065
  410. ERGOCALCIFEROL [Suspect]
     Active Substance: ERGOCALCIFEROL
     Route: 065
  411. ERGOCALCIFEROL [Suspect]
     Active Substance: ERGOCALCIFEROL
     Route: 065
  412. FLUMETHASONE [Suspect]
     Active Substance: FLUMETHASONE
     Indication: Product used for unknown indication
     Route: 065
  413. HAIR KERATIN AMINO ACIDS GOLD COMPLEX [Suspect]
     Active Substance: HAIR KERATIN AMINO ACIDS GOLD COMPLEX
     Indication: Product used for unknown indication
     Route: 065
  414. GOLD SODIUM THIOMALATE [Suspect]
     Active Substance: GOLD SODIUM THIOMALATE
     Indication: Product used for unknown indication
     Route: 065
  415. GOLD SODIUM THIOMALATE [Suspect]
     Active Substance: GOLD SODIUM THIOMALATE
     Route: 065
  416. HYDROCORTISONE PROBUTATE [Suspect]
     Active Substance: HYDROCORTISONE PROBUTATE
     Indication: Rheumatoid arthritis
     Route: 065
  417. ISOPROPYL ALCOHOL [Suspect]
     Active Substance: ISOPROPYL ALCOHOL
     Indication: Product used for unknown indication
     Route: 065
  418. ISOPROPYL ALCOHOL [Suspect]
     Active Substance: ISOPROPYL ALCOHOL
     Route: 065
  419. MINOCYCLINE HYDROCHLORIDE [Suspect]
     Active Substance: MINOCYCLINE HYDROCHLORIDE
     Indication: Product used for unknown indication
     Route: 065
  420. MINOCYCLINE HYDROCHLORIDE [Suspect]
     Active Substance: MINOCYCLINE HYDROCHLORIDE
     Route: 065
  421. MINOCYCLINE HYDROCHLORIDE [Suspect]
     Active Substance: MINOCYCLINE HYDROCHLORIDE
     Route: 065
  422. METHOTREXATE SODIUM [Suspect]
     Active Substance: METHOTREXATE SODIUM
     Indication: Rheumatoid arthritis
     Route: 065
  423. METHOTREXATE SODIUM [Suspect]
     Active Substance: METHOTREXATE SODIUM
     Route: 065
  424. METHOTREXATE SODIUM [Suspect]
     Active Substance: METHOTREXATE SODIUM
     Route: 065
  425. METHOTREXATE SODIUM [Suspect]
     Active Substance: METHOTREXATE SODIUM
     Route: 065
  426. NAPROXEN [Concomitant]
     Active Substance: NAPROXEN
     Indication: Product used for unknown indication
  427. ENBREL [Suspect]
     Active Substance: ETANERCEPT
     Indication: Rheumatoid arthritis
     Route: 065
  428. ENBREL [Suspect]
     Active Substance: ETANERCEPT
     Route: 058
  429. ENBREL [Suspect]
     Active Substance: ETANERCEPT
     Route: 058
  430. ENBREL [Suspect]
     Active Substance: ETANERCEPT
     Dosage: DAILY DOSE: 10 MILLIGRAM, QWK (7 MONTH)
     Route: 058
  431. ENBREL [Suspect]
     Active Substance: ETANERCEPT
     Route: 058
  432. ENBREL [Suspect]
     Active Substance: ETANERCEPT
     Route: 058
  433. ENBREL [Suspect]
     Active Substance: ETANERCEPT
     Dosage: DAILY DOSE: 40 MILLIGRAM, QWK (7 MONTH)
     Route: 058
  434. ENBREL [Suspect]
     Active Substance: ETANERCEPT
     Route: 058
  435. ENBREL [Suspect]
     Active Substance: ETANERCEPT
     Route: 058
  436. ENBREL [Suspect]
     Active Substance: ETANERCEPT
     Route: 065
  437. INFLIXIMAB [Suspect]
     Active Substance: INFLIXIMAB
     Indication: Rheumatoid arthritis
     Route: 042
  438. INFLIXIMAB [Suspect]
     Active Substance: INFLIXIMAB
     Route: 065
  439. INFLIXIMAB [Suspect]
     Active Substance: INFLIXIMAB
     Route: 065
  440. INFLIXIMAB [Suspect]
     Active Substance: INFLIXIMAB
     Route: 065
  441. INFLIXIMAB [Suspect]
     Active Substance: INFLIXIMAB
     Route: 065
  442. INFLIXIMAB [Suspect]
     Active Substance: INFLIXIMAB
     Route: 065
  443. INFLIXIMAB [Suspect]
     Active Substance: INFLIXIMAB
     Route: 065
  444. INFLIXIMAB [Suspect]
     Active Substance: INFLIXIMAB
     Route: 042
  445. INFLIXIMAB [Suspect]
     Active Substance: INFLIXIMAB
     Route: 065
  446. INFLIXIMAB [Suspect]
     Active Substance: INFLIXIMAB
     Route: 065
  447. ARAVA [Suspect]
     Active Substance: LEFLUNOMIDE
     Indication: Rheumatoid arthritis
     Route: 048
  448. ARAVA [Suspect]
     Active Substance: LEFLUNOMIDE
     Route: 048
  449. ARAVA [Suspect]
     Active Substance: LEFLUNOMIDE
     Route: 048
  450. ARAVA [Suspect]
     Active Substance: LEFLUNOMIDE
     Route: 048
  451. ARAVA [Suspect]
     Active Substance: LEFLUNOMIDE
     Route: 048
  452. ARAVA [Suspect]
     Active Substance: LEFLUNOMIDE
  453. CALCIUM ASCORBATE [Suspect]
     Active Substance: CALCIUM ASCORBATE
     Indication: Product used for unknown indication
     Route: 065
  454. CALCIUM ASCORBATE [Suspect]
     Active Substance: CALCIUM ASCORBATE
     Route: 065
  455. CALCIUM GLUBIONATE [Suspect]
     Active Substance: CALCIUM GLUBIONATE
     Indication: Product used for unknown indication
     Route: 065
  456. CALCIUM GLUBIONATE [Suspect]
     Active Substance: CALCIUM GLUBIONATE
     Route: 065
  457. CETIRIZINE HYDROCHLORIDE [Suspect]
     Active Substance: CETIRIZINE HYDROCHLORIDE
     Indication: Rheumatoid arthritis
     Route: 065
  458. CETIRIZINE HYDROCHLORIDE [Suspect]
     Active Substance: CETIRIZINE HYDROCHLORIDE
     Route: 065
  459. CALTRATE WITH VITAMIN D [Suspect]
     Active Substance: CALCIUM CARBONATE\CHOLECALCIFEROL
     Indication: Product used for unknown indication
  460. CALTRATE WITH VITAMIN D [Suspect]
     Active Substance: CALCIUM CARBONATE\CHOLECALCIFEROL
  461. CHLORHEXIDINE GLUCONATE\ISOPROPYL ALCOHOL [Suspect]
     Active Substance: CHLORHEXIDINE GLUCONATE\ISOPROPYL ALCOHOL
     Indication: Product used for unknown indication
     Route: 065

REACTIONS (106)
  - Vomiting [Fatal]
  - Adverse reaction [Fatal]
  - Contraindicated product administered [Fatal]
  - Obesity [Fatal]
  - Onychomycosis [Fatal]
  - Pneumonia [Fatal]
  - Hepatic enzyme increased [Fatal]
  - Blepharospasm [Fatal]
  - Discomfort [Fatal]
  - Glossodynia [Fatal]
  - Peripheral venous disease [Fatal]
  - Asthenia [Fatal]
  - Breast cancer stage III [Fatal]
  - Fibromyalgia [Fatal]
  - Abdominal pain upper [Fatal]
  - Facet joint syndrome [Fatal]
  - Headache [Fatal]
  - Peripheral swelling [Fatal]
  - Dizziness [Fatal]
  - Hepatic enzyme [Fatal]
  - Off label use [Fatal]
  - Helicobacter infection [Fatal]
  - Urticaria [Fatal]
  - Gastrointestinal disorder [Fatal]
  - Wheezing [Fatal]
  - C-reactive protein increased [Fatal]
  - Drug ineffective [Fatal]
  - Product use in unapproved indication [Fatal]
  - Depression [Fatal]
  - Injection site reaction [Fatal]
  - Confusional state [Fatal]
  - Dry mouth [Fatal]
  - Coeliac disease [Fatal]
  - Weight increased [Fatal]
  - Hand deformity [Fatal]
  - Onychomadesis [Fatal]
  - Osteoarthritis [Fatal]
  - Paraesthesia [Fatal]
  - General physical health deterioration [Fatal]
  - Epilepsy [Fatal]
  - Blister [Fatal]
  - Grip strength decreased [Fatal]
  - Folliculitis [Fatal]
  - Wound [Fatal]
  - Product quality issue [Fatal]
  - Duodenal ulcer perforation [Fatal]
  - Taste disorder [Fatal]
  - Gait inability [Fatal]
  - Sleep disorder [Fatal]
  - Drug intolerance [Fatal]
  - Drug hypersensitivity [Fatal]
  - Wound infection [Fatal]
  - Swelling [Fatal]
  - Abdominal pain [Fatal]
  - Nasopharyngitis [Fatal]
  - Nail disorder [Fatal]
  - Musculoskeletal pain [Fatal]
  - Muscle spasms [Fatal]
  - Muscle injury [Fatal]
  - Migraine [Fatal]
  - Memory impairment [Fatal]
  - Lung disorder [Fatal]
  - Lower respiratory tract infection [Fatal]
  - Liver injury [Fatal]
  - Lip dry [Fatal]
  - Joint swelling [Fatal]
  - Joint range of motion decreased [Fatal]
  - Intentional product use issue [Fatal]
  - Type 2 diabetes mellitus [Fatal]
  - Systemic lupus erythematosus [Fatal]
  - Synovitis [Fatal]
  - Stomatitis [Fatal]
  - Rheumatoid arthritis [Fatal]
  - Rash [Fatal]
  - Psoriatic arthropathy [Fatal]
  - Pericarditis [Fatal]
  - Pemphigus [Fatal]
  - Pain [Fatal]
  - Night sweats [Fatal]
  - Insomnia [Fatal]
  - Irritable bowel syndrome [Fatal]
  - Injury [Fatal]
  - Infusion related reaction [Fatal]
  - Impaired healing [Fatal]
  - Hypoaesthesia [Fatal]
  - Hypertension [Fatal]
  - Hypercholesterolaemia [Fatal]
  - Hepatitis [Fatal]
  - Gastrooesophageal reflux disease [Fatal]
  - Finger deformity [Fatal]
  - Fatigue [Fatal]
  - Fall [Fatal]
  - Dyspepsia [Fatal]
  - Drug-induced liver injury [Fatal]
  - Diarrhoea [Fatal]
  - Condition aggravated [Fatal]
  - Bursitis [Fatal]
  - Blood cholesterol increased [Fatal]
  - Back injury [Fatal]
  - Arthropathy [Fatal]
  - Arthralgia [Fatal]
  - Anti-cyclic citrullinated peptide antibody positive [Fatal]
  - Alopecia [Fatal]
  - Abdominal discomfort [Fatal]
  - Abdominal distension [Fatal]
  - Inflammation [Fatal]
